FAERS Safety Report 4413286-4 (Version None)
Quarter: 2004Q3

REPORT INFORMATION
  Report Type: 
  Country: None (occurrence: None)
  Receive Date: 20040728
  Receipt Date: 20040716
  Transmission Date: 20050211
  Serious: Yes (Hospitalization)
  Sender: FDA-Public Use
  Company Number: 2004048664

PATIENT
  Age: 66 Year
  Sex: Female
  Weight: 68.0396 kg

DRUGS (16)
  1. ROGAINE [Suspect]
     Indication: ACCIDENTAL EXPOSURE
     Dosage: LESS THAN 1 ML TWICE
     Route: 061
  2. SIMVASTATIN [Concomitant]
  3. AMIODARONE HYDROCHLORIDE [Concomitant]
  4. ASPIRIN [Concomitant]
  5. DIGOXIN [Concomitant]
  6. FUROSEMIDE [Concomitant]
  7. FAMOTIDINE [Concomitant]
  8. QUINAPRIL HYDROCHLORIDE [Concomitant]
  9. PROPYLTHIOURACIL [Concomitant]
  10. POTASSIUM CHLORIDE [Concomitant]
  11. NICOTINIC ACID [Concomitant]
  12. CLOPIDOGREL BISULFATE [Concomitant]
  13. CALCIUM [Concomitant]
  14. GLIPIZIDE [Concomitant]
  15. ISOSORBIDE MONONITRATE [Concomitant]
  16. METOPROLOL TARTRATE [Concomitant]

REACTIONS (2)
  - ACCIDENTAL EXPOSURE [None]
  - CARDIAC FAILURE CONGESTIVE [None]
